FAERS Safety Report 15783053 (Version 1)
Quarter: 2019Q1

REPORT INFORMATION
  Report Type: Spontaneous
  Country: US (occurrence: US)
  Receive Date: 20190102
  Receipt Date: 20190102
  Transmission Date: 20190417
  Serious: No
  Sender: FDA-Public Use
  Company Number: US-PERRIGO-18US002322

PATIENT
  Age: 69 Year
  Sex: Female

DRUGS (3)
  1. NYSTATIN. [Suspect]
     Active Substance: NYSTATIN
     Indication: PRODUCT USED FOR UNKNOWN INDICATION
     Dosage: UNK, BID
     Route: 061
     Dates: start: 20180216
  2. DRUGS USED IN DIABETES [Concomitant]
     Active Substance: UNSPECIFIED INGREDIENT
     Indication: DIABETES MELLITUS
     Dosage: UNKNOWN
     Route: 065
  3. CARDIAC THERAPY [Concomitant]
     Active Substance: UNSPECIFIED INGREDIENT
     Indication: CARDIAC FAILURE CONGESTIVE
     Dosage: UNK
     Route: 065

REACTIONS (1)
  - Application site pain [Unknown]

NARRATIVE: CASE EVENT DATE: 20180217
